FAERS Safety Report 11222219 (Version 3)
Quarter: 2015Q4

REPORT INFORMATION
  Report Type: Spontaneous
  Country: US (occurrence: US)
  Receive Date: 20150626
  Receipt Date: 20151116
  Transmission Date: 20160304
  Serious: Yes (Other)
  Sender: FDA-Public Use
  Company Number: US-ELI_LILLY_AND_COMPANY-US201506007306

PATIENT
  Sex: Female
  Weight: 61.22 kg

DRUGS (8)
  1. EVISTA [Suspect]
     Active Substance: RALOXIFENE HYDROCHLORIDE
     Indication: PROPHYLAXIS
  2. EVISTA [Suspect]
     Active Substance: RALOXIFENE HYDROCHLORIDE
     Indication: OSTEOPENIA
     Dosage: 60 MG, QD
     Route: 048
     Dates: start: 1998
  3. PRESERVISION AREDS [Concomitant]
     Active Substance: MINERALS\VITAMINS
     Dosage: UNK, UNKNOWN
     Route: 065
  4. VITAMIN B12 [Concomitant]
     Active Substance: CYANOCOBALAMIN
     Dosage: 2500 MG, UNKNOWN
     Route: 065
  5. VITAMIN D3 [Concomitant]
     Active Substance: CHOLECALCIFEROL
     Dosage: 4000 IU, UNKNOWN
     Route: 065
  6. LOTEMOX [Concomitant]
     Dosage: UNK, UNKNOWN
     Route: 065
  7. SYNTHROID [Concomitant]
     Active Substance: LEVOTHYROXINE SODIUM
     Dosage: 88 MG, UNKNOWN
  8. PROLENSA [Concomitant]
     Active Substance: BROMFENAC SODIUM
     Dosage: UNK, UNKNOWN
     Route: 065

REACTIONS (3)
  - Inflammation [Recovered/Resolved with Sequelae]
  - Post procedural complication [Recovered/Resolved with Sequelae]
  - Visual impairment [Not Recovered/Not Resolved]
